FAERS Safety Report 20205984 (Version 1)
Quarter: 2021Q4

REPORT INFORMATION
  Report Type: Spontaneous
  Country: US (occurrence: None)
  Receive Date: 20211217
  Receipt Date: 20211217
  Transmission Date: 20220303
  Serious: No
  Sender: FDA-Public Use
  Company Number: None

PATIENT
  Age: 72 Year
  Sex: Male
  Weight: 99 kg

DRUGS (9)
  1. CASIRIVIMAB\IMDEVIMAB [Suspect]
     Active Substance: CASIRIVIMAB\IMDEVIMAB
     Indication: COVID-19 treatment
     Dosage: OTHER FREQUENCY : ONCE SCHEDULE;?
     Route: 040
     Dates: start: 20211210, end: 20211210
  2. SODIUM CHLORIDE [Suspect]
     Active Substance: SODIUM CHLORIDE
     Indication: Product used for unknown indication
     Dosage: OTHER FREQUENCY : ONCE SCHEDULED;?
     Route: 040
     Dates: start: 20211210, end: 20211210
  3. APIXABAN [Concomitant]
     Active Substance: APIXABAN
     Dates: start: 20211210, end: 20211210
  4. ASCORBIC ACID [Concomitant]
     Active Substance: ASCORBIC ACID
     Dates: start: 20211210, end: 20211210
  5. ASPIRIN [Concomitant]
     Active Substance: ASPIRIN
     Dates: start: 20211210, end: 20211210
  6. DEXAMETHASONE [Concomitant]
     Active Substance: DEXAMETHASONE
     Dates: start: 20211210, end: 20211210
  7. INSULIN LISPRO [Concomitant]
     Active Substance: INSULIN LISPRO
     Dates: start: 20211210, end: 20211210
  8. LISINOPRIL [Concomitant]
     Active Substance: LISINOPRIL
     Dates: start: 20211210, end: 20211210
  9. ZINC SULFATE [Concomitant]
     Active Substance: ZINC SULFATE
     Dates: start: 20211210, end: 20211210

REACTIONS (3)
  - Dyspnoea [None]
  - Infusion site swelling [None]
  - Infusion site extravasation [None]

NARRATIVE: CASE EVENT DATE: 20211210
